FAERS Safety Report 25095484 (Version 1)
Quarter: 2025Q1

REPORT INFORMATION
  Report Type: Spontaneous
  Country: US (occurrence: US)
  Receive Date: 20250319
  Receipt Date: 20250319
  Transmission Date: 20250408
  Serious: Yes (Other)
  Sender: MERCK SHARP & DOHME LLC
  Company Number: US-009507513-2265731

PATIENT
  Sex: Female

DRUGS (2)
  1. PEMBROLIZUMAB [Suspect]
     Active Substance: PEMBROLIZUMAB
  2. PADCEV [Suspect]
     Active Substance: ENFORTUMAB VEDOTIN-EJFV

REACTIONS (2)
  - Neuropathy peripheral [Unknown]
  - Rash [Unknown]
